FAERS Safety Report 10741233 (Version 2)
Quarter: 2015Q1

REPORT INFORMATION
  Report Type: Spontaneous
  Country: US (occurrence: US)
  Receive Date: 20150127
  Receipt Date: 20150213
  Transmission Date: 20150721
  Serious: No
  Sender: FDA-Public Use
  Company Number: US-AMGEN-USASP2015006300

PATIENT
  Age: 59 Year
  Sex: Female
  Weight: 94.33 kg

DRUGS (13)
  1. ENBREL [Suspect]
     Active Substance: ETANERCEPT
     Indication: PSORIATIC ARTHROPATHY
     Dosage: 50 MG, QWK
     Route: 058
     Dates: start: 20141223, end: 20150202
  2. ADVIL PM                           /05810501/ [Concomitant]
     Dosage: UNK,200-25 MG, TAKE 2 CAPSULES AT BEDTIME PRN
     Route: 048
     Dates: start: 20140109
  3. ALEVE [Concomitant]
     Active Substance: NAPROXEN SODIUM
     Dosage: 220 MG, UNK, TAKE 1 TABLET DAILY PRN
     Route: 048
     Dates: start: 20140109
  4. CITALOPRAM HYDROBROMIDE. [Concomitant]
     Active Substance: CITALOPRAM HYDROBROMIDE
     Dosage: 40 MG, UNK,
     Route: 048
     Dates: start: 20131220
  5. FISH OIL [Concomitant]
     Active Substance: FISH OIL
     Dosage: 1200 MG, UNK, TAKE AS DIRECTED
     Route: 048
     Dates: start: 20140227
  6. ASTAXANTHIN [Concomitant]
     Dosage: 4 MG, UNK, DAILY
     Route: 048
     Dates: start: 20140227
  7. CENTRUM SILVER ADULTS 50+ [Concomitant]
     Active Substance: VITAMINS
     Dosage: UNK, TAKE 1 TABLET DAILY
     Route: 048
     Dates: start: 20140227
  8. FOLIC ACID. [Concomitant]
     Active Substance: FOLIC ACID
     Dosage: 1 MG, UNK, TAKE 1 TABLET DAILY
     Route: 048
     Dates: start: 20140227
  9. CHONDROITIN SULFATE (BOVINE)\GLUCOSAMINE SULFATE [Concomitant]
     Active Substance: CHONDROITIN SULFATE (BOVINE)\GLUCOSAMINE SULFATE
     Dosage: UNK, TAKE 2 CAPSULE DAILY
     Route: 048
     Dates: start: 20140227
  10. LUTEIN                             /01638501/ [Concomitant]
     Active Substance: LUTEIN
     Dosage: 6 MG, UNK, TAKE AS DIRECTED
     Route: 048
     Dates: start: 20140227
  11. HUMIRA [Concomitant]
     Active Substance: ADALIMUMAB
     Dosage: 40 MG, UNK, INJECT 40 MG SUBCUTANEOUSLY EVERY OTHER WEEK AS DIRECTED
     Route: 058
     Dates: start: 20150202
  12. LEVOTHYROXINE SODIUM. [Concomitant]
     Active Substance: LEVOTHYROXINE SODIUM
     Dosage: 175 MUG, UNK
     Route: 048
     Dates: start: 20110314
  13. TRIAMCINOLONE ACETONIDE. [Concomitant]
     Active Substance: TRIAMCINOLONE ACETONIDE
     Dosage: 0.1 %, UNK, APPLY TO AFFECTED AREA 3-4 TIMES DAILY AS NEEDED
     Dates: start: 20140416

REACTIONS (7)
  - Rash [Unknown]
  - Hypersensitivity [Unknown]
  - Injection site pain [Not Recovered/Not Resolved]
  - Erythema [Recovering/Resolving]
  - Drug administration error [Not Recovered/Not Resolved]
  - Skin irritation [Unknown]
  - Pruritus [Recovering/Resolving]

NARRATIVE: CASE EVENT DATE: 20141223
